FAERS Safety Report 6474334-3 (Version None)
Quarter: 2009Q4

REPORT INFORMATION
  Report Type: 
  Country: None (occurrence: None)
  Receive Date: 20091204
  Receipt Date: 20091125
  Transmission Date: 20100525
  Serious: Yes (Hospitalization)
  Sender: FDA-Public Use
  Company Number: US-ASTRAZENECA-2009SE28799

PATIENT
  Age: 38 Year
  Sex: Male

DRUGS (4)
  1. NEXIUM [Suspect]
     Route: 048
     Dates: start: 20090507, end: 20090510
  2. APRANAX [Suspect]
     Route: 048
     Dates: start: 20090419
  3. DI ANTALVIC [Suspect]
     Route: 048
     Dates: start: 20090419, end: 20090511
  4. MUSCLE RELAXANT [Concomitant]

REACTIONS (7)
  - CYTOLYTIC HEPATITIS [None]
  - FAECES DISCOLOURED [None]
  - JAUNDICE [None]
  - PRURITUS GENERALISED [None]
  - RASH [None]
  - TRANSAMINASES INCREASED [None]
  - URINE COLOUR ABNORMAL [None]
